FAERS Safety Report 15764974 (Version 1)
Quarter: 2018Q4

REPORT INFORMATION
  Report Type: Spontaneous
  Country: US (occurrence: US)
  Receive Date: 20181218
  Receipt Date: 20181218
  Transmission Date: 20190205
  Serious: No
  Sender: FDA-Public Use
  Company Number: None

PATIENT

DRUGS (3)
  1. LEVETIRACETAM 250 MG [Suspect]
     Active Substance: LEVETIRACETAM
     Dosage: ?          OTHER DOSE:UNIT DOSE;?
     Route: 048
  2. LEVETIRACETAM 750MG [Suspect]
     Active Substance: LEVETIRACETAM
     Dosage: ?          OTHER DOSE:UNIT DOSE;?
     Route: 048
  3. LEVETIRACETAM 500MG [Suspect]
     Active Substance: LEVETIRACETAM
     Dosage: ?          OTHER DOSE:UNIT DOSE;?
     Route: 048

REACTIONS (1)
  - Product physical issue [None]
